FAERS Safety Report 17422679 (Version 1)
Quarter: 2020Q1

REPORT INFORMATION
  Report Type: Spontaneous
  Country: FR (occurrence: FR)
  Receive Date: 20200215
  Receipt Date: 20200215
  Transmission Date: 20200409
  Serious: Yes (Hospitalization)
  Sender: FDA-Public Use
  Company Number: FR-ACCORD-172626

PATIENT
  Age: 48 Year
  Sex: Male
  Weight: 115 kg

DRUGS (3)
  1. RAMIPRIL. [Suspect]
     Active Substance: RAMIPRIL
     Route: 048
     Dates: start: 20200114, end: 20200114
  2. PRAVASTATIN. [Suspect]
     Active Substance: PRAVASTATIN
     Route: 048
     Dates: start: 20200114, end: 20200114
  3. VERAPAMIL [Suspect]
     Active Substance: VERAPAMIL HYDROCHLORIDE
     Route: 048
     Dates: start: 20200114, end: 20200114

REACTIONS (2)
  - Hypotension [Recovered/Resolved]
  - Poisoning deliberate [Unknown]

NARRATIVE: CASE EVENT DATE: 20200114
